FAERS Safety Report 12401014 (Version 2)
Quarter: 2016Q2

REPORT INFORMATION
  Report Type: Spontaneous
  Country: US (occurrence: US)
  Receive Date: 20160525
  Receipt Date: 20160525
  Transmission Date: 20160815
  Serious: No
  Sender: FDA-Public Use
  Company Number: US-SA-2015SA139302

PATIENT
  Age: 80 Year
  Sex: Male

DRUGS (2)
  1. LANTUS SOLOSTAR [Suspect]
     Active Substance: INSULIN GLARGINE
     Indication: DIABETES MELLITUS
     Dosage: DOSE:20 UNIT(S)
     Route: 065
     Dates: start: 20150713
  2. SOLOSTAR [Concomitant]
     Active Substance: DEVICE
     Dates: start: 20150713

REACTIONS (3)
  - Burning sensation [Unknown]
  - Incorrect product storage [Unknown]
  - Pain [Unknown]
